FAERS Safety Report 11569146 (Version 1)
Quarter: 2015Q3

REPORT INFORMATION
  Report Type: Spontaneous
  Country: None (occurrence: None)
  Receive Date: 20150928
  Receipt Date: 20150928
  Transmission Date: 20151125
  Serious: No
  Sender: FDA-Public Use
  Company Number: None

PATIENT
  Age: 51 Year
  Sex: Female
  Weight: 131.54 kg

DRUGS (15)
  1. LEVOTHYROXIN [Concomitant]
     Active Substance: LEVOTHYROXINE
  2. LO-OVRAL 28 [Concomitant]
  3. VITAMIN E [Concomitant]
     Active Substance: .ALPHA.-TOCOPHEROL
  4. TRAZODONE [Concomitant]
     Active Substance: TRAZODONE HYDROCHLORIDE
  5. VITAMIN D [Concomitant]
     Active Substance: CHOLECALCIFEROL
  6. DIGESTIVE ENZYMES WITH PRO-BIOTIC [Concomitant]
  7. VITA-GUMMIES [Concomitant]
  8. GINKOBA [Concomitant]
     Active Substance: GINKGO
  9. THYROID EXTRACT [Concomitant]
  10. GENERIC LAXATIVE [Concomitant]
  11. ZOLOFT [Concomitant]
     Active Substance: SERTRALINE HYDROCHLORIDE
  12. MORPHINE [Concomitant]
     Active Substance: MORPHINE
  13. MORPHINE SULFATE ER [Suspect]
     Active Substance: MORPHINE SULFATE
     Indication: INABILITY TO AFFORD MEDICATION
     Dosage: 1 PILL
     Route: 048
     Dates: start: 20150911, end: 20150925
  14. MORPHINE SULFATE ER [Suspect]
     Active Substance: MORPHINE SULFATE
     Indication: PAIN
     Dosage: 1 PILL
     Route: 048
     Dates: start: 20150911, end: 20150925
  15. VITAMIN C [Concomitant]
     Active Substance: ASCORBIC ACID

REACTIONS (3)
  - Product quality issue [None]
  - Epistaxis [None]
  - Product substitution issue [None]

NARRATIVE: CASE EVENT DATE: 20150925
